FAERS Safety Report 20997798 (Version 1)
Quarter: 2022Q2

REPORT INFORMATION
  Report Type: Spontaneous
  Country: HR (occurrence: HR)
  Receive Date: 20220623
  Receipt Date: 20220623
  Transmission Date: 20220721
  Serious: Yes (Hospitalization, Other)
  Sender: FDA-Public Use
  Company Number: None

PATIENT
  Age: 78 Year
  Sex: Male
  Weight: 70 kg

DRUGS (2)
  1. MEDROL [Suspect]
     Active Substance: METHYLPREDNISOLONE
     Indication: Corneal transplant
     Dosage: 32 MG, 2X/DAY
     Route: 048
     Dates: start: 20220217, end: 20220517
  2. ARTICEL AM [Concomitant]
     Indication: Hypertension
     Dosage: 1DF=5 MG AMLODIPINE BESILATE + 10 MG PERINDOPRIL TOSILATE
     Route: 048
     Dates: start: 20150601

REACTIONS (4)
  - Diabetic neuropathy [Recovered/Resolved]
  - Weight decreased [Recovered/Resolved]
  - Asthenia [Recovered/Resolved]
  - Diabetes mellitus [Recovered/Resolved]

NARRATIVE: CASE EVENT DATE: 20220217
